FAERS Safety Report 6061035-9 (Version None)
Quarter: 2009Q1

REPORT INFORMATION
  Report Type: 
  Country: None (occurrence: None)
  Receive Date: 20090202
  Receipt Date: 20090129
  Transmission Date: 20090719
  Serious: Yes (Life-Threatening, Hospitalization)
  Sender: FDA-Public Use
  Company Number: FR-JNJFOC-20090100750

PATIENT
  Sex: Male
  Weight: 75 kg

DRUGS (6)
  1. HALDOL DECANOAS [Suspect]
     Indication: SCHIZOPHRENIA
     Route: 030
     Dates: start: 20081208
  2. ZYPREXA [Concomitant]
     Route: 048
  3. ZYPREXA [Concomitant]
     Indication: SELF-MEDICATION
     Dosage: 12 0R 13-DEC-2008
     Route: 048
  4. DEPAKOTE [Concomitant]
     Indication: DISTURBANCE IN SOCIAL BEHAVIOUR
     Route: 048
  5. VALIUM [Concomitant]
     Indication: ANXIETY
     Route: 048
  6. HEPTAMYL [Concomitant]
     Indication: HYPOTENSION
     Route: 048

REACTIONS (1)
  - NEUROLEPTIC MALIGNANT SYNDROME [None]
